FAERS Safety Report 13059607 (Version 4)
Quarter: 2021Q4

REPORT INFORMATION
  Report Type: Spontaneous
  Country: JP (occurrence: JP)
  Receive Date: 20161223
  Receipt Date: 20211117
  Transmission Date: 20220303
  Serious: Yes (Hospitalization, Other)
  Sender: FDA-Public Use
  Company Number: JP-SA-2016SA232680

PATIENT
  Age: 67 Year
  Sex: Male
  Weight: 87 kg

DRUGS (15)
  1. RENAGEL [Suspect]
     Active Substance: SEVELAMER HYDROCHLORIDE
     Indication: Hyperphosphataemia
     Dosage: 18 DF, QD (STRENGTH: 250 MG)
     Route: 048
  2. CALCIUM CARBONATE [Concomitant]
     Active Substance: CALCIUM CARBONATE
     Dosage: STRENGTH: 500 MG, 2 TABLETS/DAY;
  3. LOSARTAN POTASSIUM [Concomitant]
     Active Substance: LOSARTAN POTASSIUM
     Dosage: STRENGTH:50 MG, 2 TABLETS/DAY
  4. NIFEDIPINE [Concomitant]
     Active Substance: NIFEDIPINE
     Dosage: STRENGTH:20 MG,1 DF, QD
  5. ALFACALCIDOL [Concomitant]
     Active Substance: ALFACALCIDOL
     Dosage: STRENGTH:0.5 MCG, 1 TABLET/DAY
  6. FUROSEMIDE [Concomitant]
     Active Substance: FUROSEMIDE
     Dosage: STRENGTH: 20 MG, BID
  7. FEBUXOSTAT [Concomitant]
     Active Substance: FEBUXOSTAT
     Dosage: STRENGTH: 20 MG, 1 TABLETS/DAY
  8. FAMOTIDINE [Concomitant]
     Active Substance: FAMOTIDINE
     Dosage: STRENGTH: 10 MG, QD
  9. BIFIDOBACTERIUM ANIMALIS LACTIS [Concomitant]
     Active Substance: BIFIDOBACTERIUM ANIMALIS LACTIS
     Dosage: 3 DF, QD
  10. ZOLPIDEM TARTRATE [Concomitant]
     Active Substance: ZOLPIDEM TARTRATE
     Dosage: STRENGTH: 5 MG, 1 DF, QD
  11. LANTHANUM CARBONATE [Concomitant]
     Active Substance: LANTHANUM CARBONATE
     Dosage: STRENGTH:(250 MG/SACHET), 6 DF, QD
  12. SODIUM FERROUS CITRATE [Concomitant]
     Active Substance: SODIUM FERROUS CITRATE
     Dosage: STRENGTH:20MG,  2 DF, QD
  13. LEVOCARNITINE [Concomitant]
     Active Substance: LEVOCARNITINE
     Dosage: STRENGTH: 250MG, 2 DF, QD
  14. AMLODIPINE BESILATE;ATENOLOL;CHLORTALIDONE [Concomitant]
     Dosage: STRENGTH: 5 MG
  15. BISOPROLOL FUMARATE [Concomitant]
     Active Substance: BISOPROLOL FUMARATE
     Dosage: STRENGTH: 2.5MG

REACTIONS (9)
  - Foreign body in respiratory tract [Unknown]
  - Aspiration [Unknown]
  - Dyspnoea [Unknown]
  - Cough [Unknown]
  - Crystal deposit intestine [Unknown]
  - Oropharyngeal discomfort [Unknown]
  - Choking [Unknown]
  - Stenosis [Unknown]
  - Atelectasis [Unknown]

NARRATIVE: CASE EVENT DATE: 20160601
